FAERS Safety Report 8823148 (Version 3)
Quarter: 2012Q4

REPORT INFORMATION
  Report Type: 
  Country: JP (occurrence: JP)
  Receive Date: 20121003
  Receipt Date: 20121204
  Transmission Date: 20130627
  Serious: Yes (Hospitalization)
  Sender: FDA-Public Use
  Company Number: JP-PFIZER INC-2012238409

PATIENT
  Age: 76 Year
  Sex: Male

DRUGS (10)
  1. FLUOROURACIL [Suspect]
     Indication: COLON CANCER
     Dosage: UNK
     Dates: start: 201008
  2. FLUOROURACIL [Suspect]
     Dosage: UNK
     Dates: start: 201011
  3. FLUOROURACIL [Suspect]
     Dosage: UNK
     Dates: start: 201203
  4. OXALIPLATIN [Suspect]
     Indication: COLON CANCER
     Dosage: UNK
     Dates: start: 201008
  5. OXALIPLATIN [Suspect]
     Dosage: UNK
     Dates: start: 201011
  6. ISOVORIN [Suspect]
     Indication: COLON CANCER
     Dosage: UNK
     Route: 041
     Dates: start: 201008
  7. ISOVORIN [Suspect]
     Dosage: UNK
     Route: 041
     Dates: start: 201011
  8. ISOVORIN [Suspect]
     Dosage: UNK
     Route: 041
     Dates: start: 201203, end: 201205
  9. BEVACIZUMAB [Suspect]
     Indication: COLON CANCER
     Dosage: UNK
     Dates: start: 201011
  10. BEVACIZUMAB [Suspect]
     Dosage: UNK
     Dates: start: 201203

REACTIONS (1)
  - Hepatitis B [Recovered/Resolved]
